FAERS Safety Report 18083961 (Version 1)
Quarter: 2020Q3

REPORT INFORMATION
  Report Type: Spontaneous
  Country: CA (occurrence: CA)
  Receive Date: 20200729
  Receipt Date: 20200729
  Transmission Date: 20201103
  Serious: Yes (Life-Threatening, Other)
  Sender: FDA-Public Use
  Company Number: CA-AUROBINDO-AUR-APL-2020-036518

PATIENT
  Age: 6 Month
  Sex: Female

DRUGS (4)
  1. AMPICILLIN [Suspect]
     Active Substance: AMPICILLIN
     Indication: SEPSIS
     Dosage: UNK
     Route: 065
  2. RIFAMPIN. [Suspect]
     Active Substance: RIFAMPIN
     Indication: PRODUCT USED FOR UNKNOWN INDICATION
     Dosage: EMPIRICAL THERAPY FOR 2 WEEKS
     Route: 065
  3. AMPICILLIN [Suspect]
     Active Substance: AMPICILLIN
     Indication: MENINGITIS
  4. CEFOTAXIME [Suspect]
     Active Substance: CEFOTAXIME SODIUM
     Indication: PRODUCT USED FOR UNKNOWN INDICATION
     Dosage: EMPIRICAL THERAPY FOR 3 WEEKS
     Route: 065

REACTIONS (5)
  - Intraventricular haemorrhage [Recovering/Resolving]
  - Candida infection [Recovering/Resolving]
  - Device related infection [Recovering/Resolving]
  - Hydrocephalus [Recovering/Resolving]
  - Bacillus infection [Recovering/Resolving]
